FAERS Safety Report 4577729-8 (Version None)
Quarter: 2005Q1

REPORT INFORMATION
  Report Type: 
  Country: None (occurrence: None)
  Receive Date: 20050208
  Receipt Date: 20050125
  Transmission Date: 20050727
  Serious: Yes (Other)
  Sender: FDA-Public Use
  Company Number: 2005-0007958

PATIENT
  Age: 10 Year
  Sex: Male
  Weight: 37 kg

DRUGS (3)
  1. VIREAD [Suspect]
     Indication: HIV INFECTION
     Dosage: 300 MG , 1 IN 1 D, ORAL
     Route: 048
     Dates: start: 20040217
  2. EPIVIR [Concomitant]
  3. SUSTIVA [Concomitant]

REACTIONS (4)
  - ARRHYTHMIA [None]
  - COXSACKIE VIRAL INFECTION [None]
  - EXTRASYSTOLES [None]
  - MYOCARDITIS [None]
